FAERS Safety Report 22289833 (Version 1)
Quarter: 2023Q2

REPORT INFORMATION
  Report Type: Spontaneous
  Country: JP (occurrence: JP)
  Receive Date: 20230505
  Receipt Date: 20230505
  Transmission Date: 20230721
  Serious: Yes (Other)
  Sender: FDA-Public Use
  Company Number: JP-MSD-M2023-17331

PATIENT
  Sex: Male

DRUGS (2)
  1. KEYTRUDA [Suspect]
     Active Substance: PEMBROLIZUMAB
     Indication: Oropharyngeal cancer
     Dosage: 200 MILLIGRAM, Q3W
     Route: 041
     Dates: start: 202211
  2. YERVOY [Concomitant]
     Active Substance: IPILIMUMAB
     Indication: Oropharyngeal cancer
     Dosage: UNK
     Route: 065
     Dates: start: 202211

REACTIONS (2)
  - Extremity necrosis [Recovering/Resolving]
  - Dermatitis [Unknown]
